FAERS Safety Report 14697983 (Version 2)
Quarter: 2025Q1

REPORT INFORMATION
  Report Type: Report from Study
  Country: GB (occurrence: GB)
  Receive Date: 20180330
  Receipt Date: 20250208
  Transmission Date: 20250408
  Serious: Yes (Life-Threatening)
  Sender: ROCHE
  Company Number: None

PATIENT
  Sex: Female

DRUGS (4)
  1. MYCOPHENOLATE MOFETIL [Suspect]
     Active Substance: MYCOPHENOLATE MOFETIL
     Indication: Immunosuppressant drug therapy
     Route: 065
  2. TACROLIMUS [Suspect]
     Active Substance: TACROLIMUS
     Indication: Immunosuppressant drug therapy
     Route: 065
  3. AZATHIOPRINE [Suspect]
     Active Substance: AZATHIOPRINE
     Indication: Immunosuppressant drug therapy
     Route: 065
  4. PREDNISOLONE [Suspect]
     Active Substance: PREDNISOLONE
     Indication: Immunosuppressant drug therapy
     Route: 065

REACTIONS (11)
  - Acute kidney injury [Recovering/Resolving]
  - Anal ulcer [Recovering/Resolving]
  - Escherichia sepsis [Recovering/Resolving]
  - Multiple organ dysfunction syndrome [Recovering/Resolving]
  - Peritonitis [Recovering/Resolving]
  - Respiratory failure [Recovering/Resolving]
  - Neutropenic sepsis [Recovering/Resolving]
  - Influenza [Recovering/Resolving]
  - Cytomegalovirus viraemia [Recovering/Resolving]
  - Proctitis viral [Recovering/Resolving]
  - Bacteraemia [Recovering/Resolving]
